FAERS Safety Report 5063552-7 (Version None)
Quarter: 2006Q3

REPORT INFORMATION
  Report Type: 
  Country: None (occurrence: None)
  Receive Date: 20060727
  Receipt Date: 20060703
  Transmission Date: 20061208
  Serious: Yes (Death)
  Sender: FDA-Public Use
  Company Number: IT-BRISTOL-MYERS SQUIBB COMPANY-13432026

PATIENT
  Age: 73 Year
  Sex: Female

DRUGS (3)
  1. PARAPLATIN [Suspect]
     Indication: OVARIAN CANCER
     Route: 042
     Dates: start: 20060615, end: 20060615
  2. TAXOL [Concomitant]
     Indication: OVARIAN CANCER
     Route: 042
     Dates: start: 20060608, end: 20060615
  3. KYTRIL [Concomitant]
     Indication: NAUSEA
     Route: 042

REACTIONS (1)
  - ANAPHYLACTIC SHOCK [None]
